FAERS Safety Report 7977235 (Version 3)
Quarter: 2015Q3

REPORT INFORMATION
  Report Type: Report from Study
  Country: CN (occurrence: CN)
  Receive Date: 20110607
  Receipt Date: 20150818
  Transmission Date: 20151125
  Serious: Yes (Death, Life-Threatening, Hospitalization, Other)
  Sender: FDA-Public Use
  Company Number: CN-BRISTOL-MYERS SQUIBB COMPANY-15780828

PATIENT
  Age: 67 Year
  Sex: Female
  Weight: 42 kg

DRUGS (5)
  1. FLUOROURACIL. [Suspect]
     Active Substance: FLUOROURACIL
     Indication: COLORECTAL CANCER
     Dosage: 29JAN11-01MAY11(91D)400MG; 1200MG 1 IN 2 WK,29JAN11-02MAY11(92D).
     Route: 042
     Dates: start: 20110129, end: 20110502
  2. CETUXIMAB [Suspect]
     Active Substance: CETUXIMAB
     Dosage: 400 MG/M2, UNK
     Route: 042
     Dates: start: 20110129
  3. FOLINIC ACID [Suspect]
     Active Substance: LEUCOVORIN
     Indication: COLORECTAL CANCER
     Dosage: 01MAY11(RECENT INF)
     Route: 042
     Dates: start: 20110129, end: 20110501
  4. CETUXIMAB [Suspect]
     Active Substance: CETUXIMAB
     Indication: COLORECTAL CANCER
     Dosage: MOST RECENT DOSE ON 16MAY2011.
     Route: 042
     Dates: start: 20110128, end: 20110523
  5. OXALIPLATIN. [Suspect]
     Active Substance: OXALIPLATIN
     Indication: COLORECTAL CANCER
     Dosage: RECENT INF:30APR11
     Route: 042
     Dates: start: 20110129, end: 20110430

REACTIONS (3)
  - Dyspnoea [Recovered/Resolved with Sequelae]
  - Multi-organ failure [Fatal]
  - Haemoglobin decreased [Unknown]

NARRATIVE: CASE EVENT DATE: 20110516
